FAERS Safety Report 21021596 (Version 1)
Quarter: 2022Q2

REPORT INFORMATION
  Report Type: Spontaneous
  Country: US (occurrence: US)
  Receive Date: 20220629
  Receipt Date: 20220629
  Transmission Date: 20220721
  Serious: Yes (Death, Other)
  Sender: FDA-Public Use
  Company Number: US-SA-SAC20220628000814

PATIENT
  Age: 41 Year
  Sex: Female

DRUGS (1)
  1. ZANTAC [Suspect]
     Active Substance: RANITIDINE HYDROCHLORIDE
     Dosage: UNK, QD
     Dates: start: 199901, end: 200912

REACTIONS (3)
  - Pancreatic carcinoma [Fatal]
  - Gastric cancer [Fatal]
  - Throat cancer [Fatal]

NARRATIVE: CASE EVENT DATE: 20190320
